FAERS Safety Report 15203894 (Version 1)
Quarter: 2018Q3

REPORT INFORMATION
  Report Type: Spontaneous
  Country: US (occurrence: US)
  Receive Date: 20180628
  Receipt Date: 20180628
  Transmission Date: 20181010
  Serious: No
  Sender: FDA-Public Use
  Company Number: None

PATIENT
  Age: 64 Year
  Sex: Female

DRUGS (5)
  1. HUMIRA [Suspect]
     Active Substance: ADALIMUMAB
     Indication: ESSENTIAL HYPERTENSION
     Route: 058
     Dates: start: 20170728
  2. METHOCARBAM [Concomitant]
     Active Substance: METHOCARBAMOL
  3. SYNTHROID [Concomitant]
     Active Substance: LEVOTHYROXINE SODIUM
  4. MOBIC [Concomitant]
     Active Substance: MELOXICAM
  5. CYMBALTA [Concomitant]
     Active Substance: DULOXETINE HYDROCHLORIDE

REACTIONS (4)
  - Surgery [None]
  - Rash [None]
  - Rash generalised [None]
  - Pruritus [None]
